FAERS Safety Report 4492617-3 (Version None)
Quarter: 2004Q4

REPORT INFORMATION
  Report Type: 
  Country: None (occurrence: None)
  Receive Date: 20041103
  Receipt Date: 20040811
  Transmission Date: 20050328
  Serious: Yes (Other)
  Sender: FDA-Public Use
  Company Number: 2004S1002392

PATIENT
  Age: 76 Year
  Sex: Female

DRUGS (5)
  1. CLONIDINE HCL [Suspect]
     Indication: HYPERTENSION
     Dosage: 0.1 MG Q AM AND PM, THEN 01MG Q AM, ORAL
     Route: 048
     Dates: start: 20040726, end: 20040816
  2. LEVOTHYROXINE SODIUM [Concomitant]
  3. DILTIAZEM HYDROCHLORIDE [Concomitant]
  4. ENTERIC COATED [Concomitant]
  5. ASPIRIN [Concomitant]

REACTIONS (9)
  - ANXIETY [None]
  - ASTHENIA [None]
  - DIZZINESS [None]
  - DRY MOUTH [None]
  - DYSPNOEA [None]
  - FATIGUE [None]
  - HEADACHE [None]
  - INSOMNIA [None]
  - PHARYNGOLARYNGEAL PAIN [None]
